FAERS Safety Report 13939365 (Version 1)
Quarter: 2017Q3

REPORT INFORMATION
  Report Type: Spontaneous
  Country: US (occurrence: US)
  Receive Date: 20170906
  Receipt Date: 20170906
  Transmission Date: 20171127
  Serious: No
  Sender: FDA-Public Use
  Company Number: None

PATIENT
  Age: 54 Year
  Sex: Male
  Weight: 70.2 kg

DRUGS (1)
  1. CADEXOMER IODINE [Suspect]
     Active Substance: CADEXOMER IODINE
     Indication: SKIN LESION
     Dates: start: 20161230, end: 20170104

REACTIONS (1)
  - Hypersensitivity [None]

NARRATIVE: CASE EVENT DATE: 20170104
